FAERS Safety Report 4418347-1 (Version None)
Quarter: 2004Q3

REPORT INFORMATION
  Report Type: 
  Country: None (occurrence: None)
  Receive Date: 20040809
  Receipt Date: 20040212
  Transmission Date: 20050211
  Serious: No
  Sender: FDA-Public Use
  Company Number: US-GLAXOSMITHKLINE-A0497975A

PATIENT
  Sex: Male

DRUGS (2)
  1. PAXIL [Suspect]
     Indication: ILL-DEFINED DISORDER
     Dosage: 25MG PER DAY
     Route: 048
     Dates: start: 20030701
  2. NEXIUM [Concomitant]

REACTIONS (1)
  - FALSE POSITIVE LABORATORY RESULT [None]
